FAERS Safety Report 9391809 (Version 1)
Quarter: 2013Q3

REPORT INFORMATION
  Report Type: Spontaneous
  Country: GB (occurrence: GB)
  Receive Date: 20130709
  Receipt Date: 20130709
  Transmission Date: 20140515
  Serious: Yes (Hospitalization, Other)
  Sender: FDA-Public Use
  Company Number: GB-TEVA-416860ISR

PATIENT
  Age: 1 Month
  Sex: Male

DRUGS (6)
  1. FOLIC ACID [Suspect]
     Indication: PRODUCT USED FOR UNKNOWN INDICATION
     Dosage: MOTHER TOOK ONE DOSAGE FORM DAILY
     Route: 064
  2. DIAZEPAM [Suspect]
     Indication: PRODUCT USED FOR UNKNOWN INDICATION
     Dosage: MOTHER TOOK 30 MG DAILY
     Route: 064
     Dates: start: 20060825, end: 20061122
  3. SUBUTEX [Suspect]
     Indication: PRODUCT USED FOR UNKNOWN INDICATION
     Dosage: 20 MG DAILY
     Route: 064
     Dates: start: 20060825, end: 20070519
  4. ENOXAPARIN [Suspect]
     Indication: PRODUCT USED FOR UNKNOWN INDICATION
     Dosage: UNKNOWN DOSING DETAILS
     Route: 064
  5. NICOTINE [Suspect]
     Indication: PRODUCT USED FOR UNKNOWN INDICATION
     Dosage: MOTHER SMOKED UP TO 15 CIGARETTES DAILY
     Route: 064
  6. BENZODIAZEPINES NOS [Suspect]
     Route: 064
     Dates: end: 20061122

REACTIONS (3)
  - Foetal exposure during pregnancy [Recovered/Resolved]
  - Drug withdrawal syndrome neonatal [Recovered/Resolved]
  - Acne infantile [Unknown]
